FAERS Safety Report 4939709-X (Version None)
Quarter: 2006Q1

REPORT INFORMATION
  Report Type: 
  Country: None (occurrence: None)
  Receive Date: 20060310
  Receipt Date: 20060227
  Transmission Date: 20060701
  Serious: Yes (Disabling)
  Sender: FDA-Public Use
  Company Number: US-MERCK-0602USA05956

PATIENT
  Age: 56 Year
  Sex: Male
  Weight: 78 kg

DRUGS (1)
  1. VIOXX [Suspect]
     Route: 065
     Dates: start: 20021119, end: 20030101

REACTIONS (9)
  - CARDIAC DISORDER [None]
  - CEREBROVASCULAR ACCIDENT [None]
  - DIZZINESS [None]
  - FALL [None]
  - FATIGUE [None]
  - FRACTURE [None]
  - HEADACHE [None]
  - JOINT INJURY [None]
  - VISION BLURRED [None]
